FAERS Safety Report 18101247 (Version 1)
Quarter: 2020Q3

REPORT INFORMATION
  Report Type: Report from Study
  Country: IN (occurrence: IN)
  Receive Date: 20200801
  Receipt Date: 20200801
  Transmission Date: 20201103
  Serious: Yes (Other)
  Sender: FDA-Public Use
  Company Number: IN-ACCORD-193508

PATIENT
  Age: 30 Year
  Sex: Female

DRUGS (1)
  1. TACROLIMUS. [Suspect]
     Active Substance: TACROLIMUS
     Indication: IMMUNOSUPPRESSION
     Dosage: 4MG/D AT CONCEPTION, PREGNANCY, DELIVERY, POSTPARTUM

REACTIONS (4)
  - Foetal growth restriction [Unknown]
  - Foetal death [Unknown]
  - Rubella in pregnancy [Unknown]
  - Maternal exposure during pregnancy [Unknown]
